FAERS Safety Report 19808360 (Version 2)
Quarter: 2021Q3

REPORT INFORMATION
  Report Type: Spontaneous
  Country: DE (occurrence: DE)
  Receive Date: 20210908
  Receipt Date: 20210913
  Transmission Date: 20211014
  Serious: Yes (Death, Life-Threatening, Hospitalization)
  Sender: FDA-Public Use
  Company Number: DE-CELGENEUS-DEU-20210900996

PATIENT
  Age: 60 Year
  Sex: Male
  Weight: 100 kg

DRUGS (1)
  1. REVLIMID [Suspect]
     Active Substance: LENALIDOMIDE
     Indication: PLASMA CELL MYELOMA
     Route: 048
     Dates: start: 20190318, end: 20210421

REACTIONS (5)
  - Lung adenocarcinoma [Fatal]
  - Dysphonia [Fatal]
  - Neoplasm skin [Fatal]
  - Neoplasm malignant [Fatal]
  - Chest wall tumour [Fatal]

NARRATIVE: CASE EVENT DATE: 20210407
